FAERS Safety Report 9047008 (Version 2)
Quarter: 2013Q1

REPORT INFORMATION
  Report Type: Report from Study
  Country: CA (occurrence: CA)
  Receive Date: 20130204
  Receipt Date: 20130318
  Transmission Date: 20140127
  Serious: Yes (Hospitalization)
  Sender: FDA-Public Use
  Company Number: PHHO2013CA001032

PATIENT
  Age: 68 None
  Sex: Female
  Weight: 77.98 kg

DRUGS (9)
  1. DICLOFENAC [Suspect]
  2. BLINDED ACZ885 [Suspect]
     Indication: CARDIOVASCULAR EVENT PROPHYLAXIS
     Dosage: DOUBLE BLIND
     Route: 058
     Dates: start: 20121206, end: 20121206
  3. BLINDED NO TREATMENT RECEIVED [Suspect]
     Indication: CARDIOVASCULAR EVENT PROPHYLAXIS
     Dosage: DOUBLE BLIND
     Route: 058
     Dates: start: 20121206, end: 20121206
  4. BLINDED PLACEBO [Suspect]
     Indication: CARDIOVASCULAR EVENT PROPHYLAXIS
     Dosage: DOUBLE BLIND
     Route: 058
     Dates: start: 20121206, end: 20121206
  5. BLINDED ACZ885 [Suspect]
     Dosage: DOUBLE BLIND
     Route: 058
     Dates: start: 20121219, end: 20121219
  6. BLINDED NO TREATMENT RECEIVED [Suspect]
     Dosage: DOUBLE BLIND
     Route: 058
     Dates: start: 20121219, end: 20121219
  7. BLINDED PLACEBO [Suspect]
     Dosage: DOUBLE BLIND
     Route: 058
     Dates: start: 20121219, end: 20121219
  8. NSAID^S [Suspect]
  9. AVALIDE [Suspect]

REACTIONS (3)
  - Renal failure acute [Recovered/Resolved]
  - Cystitis [Recovered/Resolved]
  - Hydronephrosis [Recovering/Resolving]
